FAERS Safety Report 5167617-0 (Version None)
Quarter: 2006Q4

REPORT INFORMATION
  Report Type: 
  Country: None (occurrence: None)
  Receive Date: 20060919
  Receipt Date: 20060620
  Transmission Date: 20070319
  Serious: Yes (Other)
  Sender: FDA-Public Use
  Company Number: 2006US001339

PATIENT
  Age: 85 Year
  Sex: Female

DRUGS (2)
  1. VESICARE [Suspect]
     Indication: HYPERTONIC BLADDER
     Dosage: 5 MG, UID/QD, ORAL
     Route: 048
     Dates: start: 20060502, end: 20060605
  2. HYDROCHLOROTHIAZIDE [Concomitant]

REACTIONS (1)
  - OEDEMA PERIPHERAL [None]
